FAERS Safety Report 4318662-6 (Version None)
Quarter: 2004Q1

REPORT INFORMATION
  Report Type: 
  Country: None (occurrence: None)
  Receive Date: 20040315
  Receipt Date: 20040315
  Transmission Date: 20041129
  Serious: Yes (Hospitalization, Disabling)
  Sender: FDA-Public Use
  Company Number: None

PATIENT
  Age: 54 Year
  Sex: Male
  Weight: 94.1 kg

DRUGS (4)
  1. ALPROSTADIL [Suspect]
     Indication: ERECTILE DYSFUNCTION
     Dosage: 20 MCG INTRACAVERNOUS PRN
     Route: 017
     Dates: start: 20040212, end: 20040227
  2. NAPROXEN [Concomitant]
  3. DILTIAZEM (TIAZAC) [Concomitant]
  4. SIMVASTATIN [Concomitant]

REACTIONS (1)
  - PRIAPISM [None]
